FAERS Safety Report 14566776 (Version 1)
Quarter: 2018Q1

REPORT INFORMATION
  Report Type: Spontaneous
  Country: JP (occurrence: JP)
  Receive Date: 20180223
  Receipt Date: 20180223
  Transmission Date: 20180509
  Serious: Yes (Hospitalization, Other)
  Sender: FDA-Public Use
  Company Number: JP-ASTELLAS-2003JP007340

PATIENT
  Age: 52 Year
  Sex: Male

DRUGS (29)
  1. PHENOBAL [Suspect]
     Active Substance: PHENOBARBITAL
     Indication: PRODUCT USED FOR UNKNOWN INDICATION
     Dosage: UNK UNK, UNKNOWN FREQ.
     Route: 065
     Dates: start: 20030325, end: 20030512
  2. SANDIMMUN [Concomitant]
     Active Substance: CYCLOSPORINE
     Indication: IMMUNOSUPPRESSANT DRUG THERAPY
     Route: 041
     Dates: start: 20030520, end: 20030526
  3. PREDNISOLONE. [Concomitant]
     Active Substance: PREDNISOLONE
     Route: 048
  4. FIRSTCIN [Concomitant]
     Active Substance: CEFOZOPRAN HYDROCHLORIDE
     Indication: STAPHYLOCOCCAL BACTERAEMIA
     Dosage: UNK UNK, CONTINUOUS
     Route: 041
     Dates: start: 2003
  5. DENOSINE                           /00784201/ [Concomitant]
     Active Substance: GANCICLOVIR
     Indication: STAPHYLOCOCCAL BACTERAEMIA
     Dosage: UNK UNK, CONTINUOUS
     Route: 041
     Dates: start: 2003
  6. NEORAL [Concomitant]
     Active Substance: CYCLOSPORINE
     Indication: IMMUNOSUPPRESSANT DRUG THERAPY
     Route: 048
     Dates: start: 20030527
  7. SOLBASE [Concomitant]
     Indication: TOXIC EPIDERMAL NECROLYSIS
     Dosage: UNK UNK, UNKNOWN FREQ.
     Route: 065
     Dates: start: 20030529
  8. GENTAMICIN SULFATE. [Concomitant]
     Active Substance: GENTAMICIN SULFATE
     Indication: TOXIC EPIDERMAL NECROLYSIS
     Dosage: UNK UNK, UNKNOWN FREQ.
     Route: 061
     Dates: start: 20030520, end: 20030522
  9. TARGOCID [Concomitant]
     Active Substance: TEICOPLANIN
     Indication: STAPHYLOCOCCAL BACTERAEMIA
     Dosage: UNK UNK, CONTINUOUS
     Route: 041
     Dates: start: 2003
  10. DIFLUCAN [Concomitant]
     Active Substance: FLUCONAZOLE
     Indication: STAPHYLOCOCCAL BACTERAEMIA
     Dosage: UNK UNK, UNKNOWN FREQ.
     Route: 048
     Dates: start: 2003
  11. PROGRAF [Suspect]
     Active Substance: TACROLIMUS\TACROLIMUS ANHYDROUS
     Indication: IMMUNOSUPPRESSANT DRUG THERAPY
     Dosage: UNK UNK, UNKNOWN FREQ.
     Route: 048
     Dates: start: 200108, end: 20030519
  12. PREDNISOLONE. [Concomitant]
     Active Substance: PREDNISOLONE
     Indication: TOXIC EPIDERMAL NECROLYSIS
     Route: 048
     Dates: start: 20030522
  13. URINORM [Concomitant]
     Active Substance: BENZBROMARONE
     Indication: PRODUCT USED FOR UNKNOWN INDICATION
     Dosage: UNK UNK, UNKNOWN FREQ.
     Route: 048
     Dates: start: 200111, end: 20030514
  14. ORTHOCLONE OKT3 [Concomitant]
     Active Substance: MUROMONAB-CD3
     Indication: IMMUNOSUPPRESSANT DRUG THERAPY
     Dosage: UNK UNK, UNKNOWN FREQ.
     Route: 042
     Dates: end: 20030520
  15. SOLU-MEDROL [Concomitant]
     Active Substance: METHYLPREDNISOLONE SODIUM SUCCINATE
     Indication: TOXIC EPIDERMAL NECROLYSIS
     Route: 065
     Dates: start: 20030520, end: 20030522
  16. ACRINOL                            /00275001/ [Concomitant]
     Dosage: UNK UNK, UNKNOWN FREQ.
     Route: 065
     Dates: start: 20030529
  17. AMLODIN [Concomitant]
     Active Substance: AMLODIPINE BESYLATE
     Indication: PRODUCT USED FOR UNKNOWN INDICATION
     Dosage: UNK UNK, UNKNOWN FREQ.
     Route: 048
     Dates: start: 200109, end: 20030422
  18. NU-LOTAN [Concomitant]
     Active Substance: LOSARTAN POTASSIUM
     Indication: PRODUCT USED FOR UNKNOWN INDICATION
     Dosage: UNK UNK, UNKNOWN FREQ.
     Route: 048
     Dates: start: 200111, end: 20030514
  19. HYPEN                              /00613801/ [Concomitant]
     Active Substance: ETODOLAC
     Indication: PRODUCT USED FOR UNKNOWN INDICATION
     Dosage: UNK UNK, UNKNOWN FREQ.
     Route: 048
     Dates: start: 20030403, end: 20030517
  20. METHYLPREDNISOLONE. [Concomitant]
     Active Substance: METHYLPREDNISOLONE
     Indication: IMMUNOSUPPRESSANT DRUG THERAPY
     Dosage: UNK UNK, UNKNOWN FREQ.
     Route: 065
     Dates: end: 20030520
  21. U-PASTA [Concomitant]
     Indication: TOXIC EPIDERMAL NECROLYSIS
     Dosage: UNK UNK, UNKNOWN FREQ.
     Route: 065
     Dates: start: 20030529
  22. AZATHIOPRINE. [Concomitant]
     Active Substance: AZATHIOPRINE
     Indication: IMMUNOSUPPRESSANT DRUG THERAPY
     Dosage: UNK UNK, UNKNOWN FREQ.
     Route: 065
     Dates: end: 20030520
  23. BISMUTH SUBGALLATE [Concomitant]
     Active Substance: BISMUTH SUBGALLATE
     Indication: TOXIC EPIDERMAL NECROLYSIS
     Dosage: UNK UNK, UNKNOWN FREQ.
     Route: 061
     Dates: start: 20030522
  24. LASIX [Concomitant]
     Active Substance: FUROSEMIDE
     Indication: PRODUCT USED FOR UNKNOWN INDICATION
     Dosage: UNK UNK, UNKNOWN FREQ.
     Route: 065
     Dates: start: 200108, end: 20030519
  25. RINDERON V [Concomitant]
     Active Substance: BETAMETHASONE VALERATE
     Indication: TOXIC SKIN ERUPTION
     Route: 041
     Dates: start: 20030514, end: 20030515
  26. RINDERON V [Concomitant]
     Active Substance: BETAMETHASONE VALERATE
     Route: 041
     Dates: start: 20030516
  27. ACRINOL                            /00275001/ [Concomitant]
     Indication: TOXIC EPIDERMAL NECROLYSIS
     Dosage: UNK UNK, UNKNOWN FREQ.
     Route: 065
     Dates: start: 20030520, end: 20030528
  28. NEORAL [Concomitant]
     Active Substance: CYCLOSPORINE
     Dosage: THE ORAL DOSES WERE ADJUSTED PROPERLY AS THE DRUG LEVEL IN BLOOD WAS MONITORED REGULARLY
     Route: 048
  29. MACROGOL [Concomitant]
     Active Substance: POLYETHYLENE GLYCOLS
     Indication: TOXIC EPIDERMAL NECROLYSIS
     Dosage: UNK UNK, UNKNOWN FREQ.
     Route: 065
     Dates: start: 20030529

REACTIONS (10)
  - Toxic epidermal necrolysis [Recovering/Resolving]
  - Osteitis [Recovering/Resolving]
  - Alanine aminotransferase increased [Recovering/Resolving]
  - Blood beta-D-glucan increased [Recovering/Resolving]
  - Protein total decreased [Recovering/Resolving]
  - Lymphoma [Unknown]
  - Staphylococcal bacteraemia [Recovering/Resolving]
  - White blood cell count decreased [Recovering/Resolving]
  - Cytomegalovirus test [Recovering/Resolving]
  - C-reactive protein increased [Recovering/Resolving]

NARRATIVE: CASE EVENT DATE: 2003
